FAERS Safety Report 4940646-5 (Version None)
Quarter: 2006Q1

REPORT INFORMATION
  Report Type: 
  Country: None (occurrence: None)
  Receive Date: 20060206
  Receipt Date: 20050415
  Transmission Date: 20060701
  Serious: Yes (Hospitalization)
  Sender: FDA-Public Use
  Company Number: MEDI-0003194

PATIENT
  Age: 56 Year
  Sex: Female
  Weight: 72.5755 kg

DRUGS (11)
  1. ETHYOL [Suspect]
     Indication: RADIOTHERAPY
     Dosage: 500 MG, 5 IN 1 WK, SUBCUTANEOUS
     Route: 058
     Dates: start: 20041213, end: 20050201
  2. RADIATION THERAPY [Concomitant]
  3. KEFLEX [Concomitant]
  4. DITROPAN [Concomitant]
  5. ZESTORETIC [Concomitant]
  6. LEXAPRO [Concomitant]
  7. SYNTHROID [Concomitant]
  8. MAGIC MOUTHWASH [Concomitant]
  9. HUMIBID (GUAIFENESIN) [Concomitant]
  10. NYSTATIN [Concomitant]
  11. TRENTAL [Concomitant]

REACTIONS (10)
  - CHILLS [None]
  - INJECTION SITE REACTION [None]
  - NAUSEA [None]
  - ORAL INTAKE REDUCED [None]
  - ORAL MUCOSAL EXFOLIATION [None]
  - PYREXIA [None]
  - SKIN EXFOLIATION [None]
  - SKIN REACTION [None]
  - STEVENS-JOHNSON SYNDROME [None]
  - URTICARIA [None]
